FAERS Safety Report 8172397-0 (Version None)
Quarter: 2012Q1

REPORT INFORMATION
  Report Type: 
  Country: None (occurrence: None)
  Receive Date: 20120229
  Receipt Date: 20120220
  Transmission Date: 20120608
  Serious: Yes (Life-Threatening, Hospitalization)
  Sender: FDA-Public Use
  Company Number: DE-GE HEALTHCARE MEDICAL DIAGNOSTICS-VISP-GE-1201S-0008

PATIENT
  Sex: Female
  Weight: 55 kg

DRUGS (1)
  1. VISIPAQUE [Suspect]
     Indication: ACUTE MYOCARDIAL INFARCTION
     Route: 042
     Dates: start: 20110801, end: 20110801

REACTIONS (8)
  - LACTIC ACIDOSIS [None]
  - SYSTEMIC INFLAMMATORY RESPONSE SYNDROME [None]
  - RHABDOMYOLYSIS [None]
  - PNEUMONIA [None]
  - NERVOUS SYSTEM DISORDER [None]
  - DELIRIUM [None]
  - SEPTIC SHOCK [None]
  - APHASIA [None]
